FAERS Safety Report 12520686 (Version 1)
Quarter: 2016Q2

REPORT INFORMATION
  Report Type: Spontaneous
  Country: US (occurrence: None)
  Receive Date: 20160630
  Receipt Date: 20160630
  Transmission Date: 20160815
  Serious: Yes (Life-Threatening, Hospitalization)
  Sender: FDA-Public Use
  Company Number: None

PATIENT
  Age: 59 Year
  Sex: Male
  Weight: 108.86 kg

DRUGS (5)
  1. CUMADIN [Concomitant]
     Active Substance: WARFARIN SODIUM
  2. ASPIRIN. [Concomitant]
     Active Substance: ASPIRIN
  3. OTEZLA [Suspect]
     Active Substance: APREMILAST
     Indication: PSORIATIC ARTHROPATHY
     Route: 048
     Dates: start: 20160617, end: 20160624
  4. METROPOL [Concomitant]
  5. CENTRUM VITAMINS [Concomitant]

REACTIONS (10)
  - Myalgia [None]
  - Pyrexia [None]
  - Fatigue [None]
  - Sepsis [None]
  - Nausea [None]
  - Confusional state [None]
  - Urinary tract infection [None]
  - Immune system disorder [None]
  - Arthralgia [None]
  - Dehydration [None]

NARRATIVE: CASE EVENT DATE: 20160620
